FAERS Safety Report 5225806-0 (Version None)
Quarter: 2007Q1

REPORT INFORMATION
  Report Type: 
  Country: None (occurrence: None)
  Receive Date: 20070130
  Receipt Date: 20070130
  Transmission Date: 20070707
  Serious: Yes (Other)
  Sender: FDA-Public Use
  Company Number: None

PATIENT
  Age: 48 Year
  Sex: Male
  Weight: 90.2658 kg

DRUGS (4)
  1. LYRICA [Suspect]
     Indication: NEURALGIA
     Dosage: LYRICA 100 MG  EVERY MORNING  PO
     Route: 048
     Dates: start: 20060501, end: 20061016
  2. LYRICA [Suspect]
     Indication: SPINAL CORD COMPRESSION
     Dosage: LYRICA 100 MG  EVERY MORNING  PO
     Route: 048
     Dates: start: 20060501, end: 20061016
  3. LYRICA [Suspect]
     Indication: NEURALGIA
     Dosage: LYRICA  50 MG   EVERY EVENING  PO
     Route: 048
     Dates: start: 20060501, end: 20061016
  4. LYRICA [Suspect]
     Indication: SPINAL CORD COMPRESSION
     Dosage: LYRICA  50 MG   EVERY EVENING  PO
     Route: 048
     Dates: start: 20060501, end: 20061016

REACTIONS (2)
  - VISION BLURRED [None]
  - VISUAL ACUITY REDUCED [None]
